FAERS Safety Report 11558352 (Version 2)
Quarter: 2015Q4

REPORT INFORMATION
  Report Type: Spontaneous
  Country: US (occurrence: US)
  Receive Date: 20150928
  Receipt Date: 20151005
  Transmission Date: 20160304
  Serious: No
  Sender: FDA-Public Use
  Company Number: US-PFIZER INC-2015314379

PATIENT
  Age: 68 Year
  Sex: Female

DRUGS (1)
  1. GABAPENTIN. [Suspect]
     Active Substance: GABAPENTIN
     Indication: PAIN
     Dosage: 300MG, SHE IS SUPPOSED TO TAKE IT 3 TIMES A DAY , BUT SHE ONLY TAKES IT ONCE A DAY

REACTIONS (2)
  - Drug hypersensitivity [Unknown]
  - Somnolence [Unknown]
